FAERS Safety Report 21558909 (Version 1)
Quarter: 2022Q4

REPORT INFORMATION
  Report Type: Spontaneous
  Country: US (occurrence: None)
  Receive Date: 20221104
  Receipt Date: 20221104
  Transmission Date: 20230113
  Serious: Yes (Hospitalization)
  Sender: FDA-Public Use
  Company Number: None

PATIENT
  Age: 64 Year
  Sex: Male
  Weight: 95.7 kg

DRUGS (2)
  1. TAXOTERE [Suspect]
     Active Substance: DOCETAXEL
     Dates: end: 20221013
  2. RAMUCIRUMAB [Suspect]
     Active Substance: RAMUCIRUMAB
     Dates: end: 20221013

REACTIONS (14)
  - Confusional state [None]
  - Tachycardia [None]
  - Respiratory rate increased [None]
  - Pneumonia [None]
  - Sepsis [None]
  - Acute kidney injury [None]
  - Hypervolaemia [None]
  - Pulmonary embolism [None]
  - Dysphagia [None]
  - Fatigue [None]
  - Epistaxis [None]
  - Neuropathy peripheral [None]
  - Nausea [None]
  - Decreased appetite [None]

NARRATIVE: CASE EVENT DATE: 20221025
